FAERS Safety Report 17037596 (Version 1)
Quarter: 2019Q4

REPORT INFORMATION
  Report Type: Spontaneous
  Country: US (occurrence: US)
  Receive Date: 20191115
  Receipt Date: 20191115
  Transmission Date: 20200122
  Serious: Yes (Other)
  Sender: FDA-Public Use
  Company Number: NVSC2019US035590

PATIENT
  Age: 12 Year
  Sex: Female

DRUGS (1)
  1. METHOTREXATE. [Suspect]
     Active Substance: METHOTREXATE
     Indication: MEDULLOBLASTOMA
     Dosage: UNK, BID
     Route: 037

REACTIONS (6)
  - Neurotoxicity [Unknown]
  - Medulloblastoma [Unknown]
  - Product use in unapproved indication [Unknown]
  - Necrosis [Unknown]
  - Malignant neoplasm progression [Unknown]
  - Disease recurrence [Unknown]
